FAERS Safety Report 17008949 (Version 1)
Quarter: 2019Q4

REPORT INFORMATION
  Report Type: Report from Study
  Country: None (occurrence: US)
  Receive Date: 20191108
  Receipt Date: 20191108
  Transmission Date: 20200122
  Serious: Yes (Other)
  Sender: FDA-Public Use
  Company Number: US-ABBVIE-19K-163-2989821-00

PATIENT
  Age: 30 Year
  Sex: Female

DRUGS (1)
  1. HUMIRA [Suspect]
     Active Substance: ADALIMUMAB
     Indication: COLITIS ULCERATIVE
     Dosage: CITRATE FREE.
     Route: 058

REACTIONS (7)
  - Injection site bruising [Not Recovered/Not Resolved]
  - Abdominal pain upper [Unknown]
  - Ovarian rupture [Recovering/Resolving]
  - Endometriosis [Recovering/Resolving]
  - Ankle fracture [Recovered/Resolved]
  - Adnexal torsion [Recovering/Resolving]
  - Ovarian haemorrhage [Unknown]

NARRATIVE: CASE EVENT DATE: 201808
